FAERS Safety Report 8120542-5 (Version None)
Quarter: 2012Q1

REPORT INFORMATION
  Report Type: 
  Country: None (occurrence: None)
  Receive Date: 20120203
  Receipt Date: 20120126
  Transmission Date: 20120608
  Serious: Yes (Other)
  Sender: FDA-Public Use
  Company Number: AUR-APL-2012-00707

PATIENT
  Age: 34 Week
  Weight: 2.36 kg

DRUGS (3)
  1. STAVUDINE [Suspect]
     Indication: PRODUCT USED FOR UNKNOWN INDICATION
     Dosage: (80 UNKNOWN), UNKNOWN
  2. NELFINAVIR MESYLATE [Suspect]
     Indication: PRODUCT USED FOR UNKNOWN INDICATION
     Dosage: (1250 UNKNOWN), UNKNOWN
  3. LAMIVUDINE (LAMIVUDINE) [Suspect]
     Indication: PRODUCT USED FOR UNKNOWN INDICATION
     Dosage: (300 UNKNOWN), UNKNOWN

REACTIONS (1)
  - ILEAL ATRESIA [None]
